FAERS Safety Report 17153067 (Version 1)
Quarter: 2019Q4

REPORT INFORMATION
  Report Type: Report from Study
  Country: CO (occurrence: CO)
  Receive Date: 20191213
  Receipt Date: 20191213
  Transmission Date: 20200122
  Serious: Yes (Hospitalization, Other)
  Sender: FDA-Public Use
  Company Number: CO-ASTELLAS-2019US037063

PATIENT
  Age: 68 Year
  Sex: Male

DRUGS (6)
  1. B COMPLEX                          /00212701/ [Concomitant]
     Active Substance: NIACINAMIDE\PYRIDOXINE\RIBOFLAVIN\THIAMINE
     Indication: ANAEMIA
     Dosage: UNK UNK, UNKNOWN FREQ.
     Route: 030
  2. PREDNISOLONE. [Concomitant]
     Active Substance: PREDNISOLONE
     Indication: TRANSPLANT
     Route: 048
     Dates: start: 20190709
  3. TACROLIMUS. [Suspect]
     Active Substance: TACROLIMUS
     Indication: RENAL TRANSPLANT
     Dosage: 7 MG (1 CAPSULE OF 5 MG AND 2 OF 1 MG), ONCE DAILY
     Route: 048
     Dates: start: 20190803
  4. FOLIC ACID. [Concomitant]
     Active Substance: FOLIC ACID
     Indication: ANAEMIA
     Route: 048
     Dates: start: 201907
  5. MYCOPHENOLATE [Concomitant]
     Active Substance: MYCOPHENOLIC ACID
     Indication: TRANSPLANT
     Route: 048
     Dates: start: 20190709
  6. ERYTHROPOIETIN [Concomitant]
     Active Substance: ERYTHROPOIETIN
     Indication: ANAEMIA
     Dosage: UNK, UNKNOWN FREQ. DAY IN BETWEEN
     Route: 042

REACTIONS (12)
  - Diarrhoea [Recovering/Resolving]
  - Tuberculosis [Not Recovered/Not Resolved]
  - Renal haemorrhage [Unknown]
  - Hypotension [Recovered/Resolved]
  - Anaemia [Recovering/Resolving]
  - Immunodeficiency [Not Recovered/Not Resolved]
  - Colitis [Recovered/Resolved]
  - Gastritis [Recovering/Resolving]
  - Urinary tract infection [Recovering/Resolving]
  - Decreased appetite [Recovering/Resolving]
  - Kidney transplant rejection [Not Recovered/Not Resolved]
  - Pneumonia bacterial [Recovering/Resolving]

NARRATIVE: CASE EVENT DATE: 20190808
